FAERS Safety Report 25426199 (Version 5)
Quarter: 2025Q3

REPORT INFORMATION
  Report Type: Spontaneous
  Country: US (occurrence: US)
  Receive Date: 20250612
  Receipt Date: 20250724
  Transmission Date: 20251021
  Serious: No
  Sender: KARYOPHARM THERAPEUTICS
  Company Number: US-KARYOPHARM-2025KPT100357

PATIENT

DRUGS (9)
  1. SELINEXOR [Suspect]
     Active Substance: SELINEXOR
     Indication: Plasma cell myeloma
     Route: 048
     Dates: start: 20250603, end: 2025
  2. ASPIRIN [Concomitant]
     Active Substance: ASPIRIN
  3. CHLORTHALIDONE [Concomitant]
     Active Substance: CHLORTHALIDONE
  4. ACYCLOVIR [Concomitant]
     Active Substance: ACYCLOVIR
  5. XANAX [Concomitant]
     Active Substance: ALPRAZOLAM
  6. ESTRADIOL [Concomitant]
     Active Substance: ESTRADIOL
  7. REPATHA [Concomitant]
     Active Substance: EVOLOCUMAB
  8. ZOLEDRONIC ACID [Concomitant]
     Active Substance: ZOLEDRONIC ACID
  9. DEXAMETHASONE [Concomitant]
     Active Substance: DEXAMETHASONE

REACTIONS (10)
  - Brain fog [Unknown]
  - Taste disorder [Unknown]
  - Tremor [Unknown]
  - Abdominal discomfort [Unknown]
  - Aphasia [Unknown]
  - Nausea [Unknown]
  - Fatigue [Recovering/Resolving]
  - Decreased appetite [Unknown]
  - Constipation [Recovering/Resolving]
  - Drug ineffective [Unknown]

NARRATIVE: CASE EVENT DATE: 20250101
